FAERS Safety Report 8954780 (Version 1)
Quarter: 2012Q4

REPORT INFORMATION
  Report Type: 
  Country: US (occurrence: US)
  Receive Date: 20121207
  Receipt Date: 20121207
  Transmission Date: 20130627
  Serious: Yes (Other)
  Sender: FDA-Public Use
  Company Number: US-ASTRAZENECA-2012SE90206

PATIENT
  Age: 65 Year
  Sex: Male

DRUGS (6)
  1. QUETIAPINE [Suspect]
     Indication: AGITATION
     Route: 048
  2. QUETIAPINE [Suspect]
     Indication: DELIRIUM
     Route: 048
  3. HALOPERIDOL [Suspect]
     Indication: AGITATION
  4. HALOPERIDOL [Suspect]
     Indication: DELIRIUM
  5. OLANZAPINE [Suspect]
     Indication: AGITATION
  6. OLANZAPINE [Suspect]
     Indication: DELIRIUM

REACTIONS (2)
  - Condition aggravated [Recovered/Resolved]
  - Drug ineffective [Unknown]
